FAERS Safety Report 6096172-6 (Version None)
Quarter: 2009Q1

REPORT INFORMATION
  Report Type: 
  Country: None (occurrence: None)
  Receive Date: 20090227
  Receipt Date: 20080915
  Transmission Date: 20090719
  Serious: No
  Sender: FDA-Public Use
  Company Number: A0748479A

PATIENT
  Sex: Female

DRUGS (4)
  1. LAMICTAL [Suspect]
     Dosage: 200MG AT NIGHT
     Route: 048
  2. LITHIUM [Concomitant]
     Dosage: 50MG UNKNOWN
     Route: 048
  3. SEROQUEL [Concomitant]
     Dosage: 6MG UNKNOWN
     Route: 048
  4. DIANE [Concomitant]
     Indication: CONTRACEPTION

REACTIONS (3)
  - INITIAL INSOMNIA [None]
  - INSOMNIA [None]
  - PRURITUS [None]
